FAERS Safety Report 5115694-5 (Version None)
Quarter: 2006Q3

REPORT INFORMATION
  Report Type: 
  Country: None (occurrence: None)
  Receive Date: 20060926
  Receipt Date: 20060926
  Transmission Date: 20061208
  Serious: Yes (Other)
  Sender: FDA-Public Use
  Company Number: None

PATIENT
  Sex: Female

DRUGS (8)
  1. GEODON [Suspect]
     Indication: CONVULSION
     Dosage: 160 MG/DAY DIVIDED DOSES PO
     Route: 048
     Dates: start: 20060415, end: 20060524
  2. GEODON [Suspect]
     Indication: PERSONALITY CHANGE
     Dosage: 160 MG/DAY DIVIDED DOSES PO
     Route: 048
     Dates: start: 20060415, end: 20060524
  3. DEPAKOTE [Suspect]
     Indication: CONVULSION
     Dosage: 1500 MG/DAY DIVIDED DOSES PO
     Route: 048
     Dates: start: 20060415
  4. DEPAKOTE [Suspect]
     Indication: PERSONALITY CHANGE
     Dosage: 1500 MG/DAY DIVIDED DOSES PO
     Route: 048
     Dates: start: 20060415
  5. KLONOPIN [Concomitant]
  6. PROLIXIN [Concomitant]
  7. L-CARNITINE [Concomitant]
  8. COGENTIN [Concomitant]

REACTIONS (13)
  - AFFECT LABILITY [None]
  - BLOOD PRESSURE DECREASED [None]
  - COGWHEEL RIGIDITY [None]
  - CONSCIOUSNESS FLUCTUATING [None]
  - DEPRESSED LEVEL OF CONSCIOUSNESS [None]
  - DYSARTHRIA [None]
  - GAIT DISTURBANCE [None]
  - LETHARGY [None]
  - MUSCULOSKELETAL STIFFNESS [None]
  - MYALGIA [None]
  - SALIVARY HYPERSECRETION [None]
  - STUPOR [None]
  - TREMOR [None]
